FAERS Safety Report 25097626 (Version 1)
Quarter: 2025Q1

REPORT INFORMATION
  Report Type: Spontaneous
  Country: US (occurrence: US)
  Receive Date: 20250320
  Receipt Date: 20250320
  Transmission Date: 20250408
  Serious: No
  Sender: AUROBINDO
  Company Number: US-AUROBINDO-AUR-APL-2024-014500

PATIENT
  Age: 55 Year
  Sex: Female
  Weight: 73.482 kg

DRUGS (1)
  1. GABAPENTIN [Suspect]
     Active Substance: GABAPENTIN
     Indication: Fibromyalgia
     Dosage: 2 DOSAGE FORM, TWO TIMES A DA (200MG IN MORNING AND 400MG AT NIGHT )
     Route: 048
     Dates: start: 20240311

REACTIONS (7)
  - Blepharospasm [Unknown]
  - Malaise [Unknown]
  - Oesophageal disorder [Unknown]
  - Hypervigilance [Unknown]
  - Agitation [Recovered/Resolved]
  - Product quality issue [Unknown]
  - Product use in unapproved indication [Unknown]

NARRATIVE: CASE EVENT DATE: 20240301
